FAERS Safety Report 16223473 (Version 2)
Quarter: 2019Q3

REPORT INFORMATION
  Report Type: Spontaneous
  Country: US (occurrence: US)
  Receive Date: 20190422
  Receipt Date: 20190805
  Transmission Date: 20191004
  Serious: Yes (Hospitalization)
  Sender: FDA-Public Use
  Company Number: US-PFIZER INC-2019162325

PATIENT
  Age: 62 Year
  Sex: Male

DRUGS (2)
  1. TAGRISSO [Concomitant]
     Active Substance: OSIMERTINIB
     Indication: NON-SMALL CELL LUNG CANCER
     Dosage: UNK
  2. XALKORI [Suspect]
     Active Substance: CRIZOTINIB
     Indication: LUNG NEOPLASM MALIGNANT
     Dosage: 250 MG, UNK

REACTIONS (3)
  - Product use in unapproved indication [Unknown]
  - General physical health deterioration [Unknown]
  - Off label use [Unknown]
